FAERS Safety Report 12246046 (Version 1)
Quarter: 2016Q2

REPORT INFORMATION
  Report Type: Spontaneous
  Country: US (occurrence: US)
  Receive Date: 20160407
  Receipt Date: 20160407
  Transmission Date: 20160815
  Serious: No
  Sender: FDA-Public Use
  Company Number: US-BRISTOL-MYERS SQUIBB COMPANY-BMS-2016-025373

PATIENT
  Age: 87 Year
  Sex: Female

DRUGS (2)
  1. CURCUMIN [Concomitant]
     Active Substance: CURCUMIN
     Indication: ANTIINFLAMMATORY THERAPY
     Dosage: 1 TAB, QD
     Route: 065
  2. COUMADIN [Suspect]
     Active Substance: WARFARIN SODIUM
     Indication: PRODUCT USED FOR UNKNOWN INDICATION
     Route: 048

REACTIONS (7)
  - Vision blurred [Unknown]
  - Nasal septum deviation [Unknown]
  - Dizziness [Unknown]
  - Face injury [Unknown]
  - Headache [Unknown]
  - Balance disorder [Unknown]
  - Vertigo [Unknown]
